FAERS Safety Report 7248770-1 (Version None)
Quarter: 2011Q1

REPORT INFORMATION
  Report Type: 
  Country: None (occurrence: None)
  Receive Date: 20110121
  Receipt Date: 20110121
  Transmission Date: 20110831
  Serious: Yes (Disabling, Other)
  Sender: FDA-Public Use
  Company Number: None

PATIENT
  Sex: Female
  Weight: 68.0396 kg

DRUGS (26)
  1. DARVOCET [Suspect]
     Indication: NECK PAIN
     Dosage: 100/650 1 OR 2 TABLES WHEN NEEDED FOR PAIN BY MOUTH
     Route: 048
     Dates: start: 20061227
  2. DARVOCET [Suspect]
     Indication: PAIN IN EXTREMITY
     Dosage: 100/650 1 OR 2 TABLES WHEN NEEDED FOR PAIN BY MOUTH
     Route: 048
     Dates: start: 20061227
  3. DARVOCET [Suspect]
     Indication: BACK PAIN
     Dosage: 100/650 1 OR 2 TABLES WHEN NEEDED FOR PAIN BY MOUTH
     Route: 048
     Dates: start: 20061227
  4. DARVOCET [Suspect]
     Indication: FIBROMYALGIA
     Dosage: 100/650 1 OR 2 TABLES WHEN NEEDED FOR PAIN BY MOUTH
     Route: 048
     Dates: start: 20061227
  5. DARVOCET [Suspect]
     Indication: ARTHRALGIA
     Dosage: 100/650 1 OR 2 TABLES WHEN NEEDED FOR PAIN BY MOUTH
     Route: 048
     Dates: start: 20061227
  6. DARVOCET [Suspect]
     Indication: NECK PAIN
     Dosage: 100/650 1 OR 2 TABLES WHEN NEEDED FOR PAIN BY MOUTH
     Route: 048
     Dates: start: 20080325
  7. DARVOCET [Suspect]
     Indication: PAIN IN EXTREMITY
     Dosage: 100/650 1 OR 2 TABLES WHEN NEEDED FOR PAIN BY MOUTH
     Route: 048
     Dates: start: 20080325
  8. DARVOCET [Suspect]
     Indication: BACK PAIN
     Dosage: 100/650 1 OR 2 TABLES WHEN NEEDED FOR PAIN BY MOUTH
     Route: 048
     Dates: start: 20080325
  9. DARVOCET [Suspect]
     Indication: FIBROMYALGIA
     Dosage: 100/650 1 OR 2 TABLES WHEN NEEDED FOR PAIN BY MOUTH
     Route: 048
     Dates: start: 20080325
  10. DARVOCET [Suspect]
     Indication: ARTHRALGIA
     Dosage: 100/650 1 OR 2 TABLES WHEN NEEDED FOR PAIN BY MOUTH
     Route: 048
     Dates: start: 20080325
  11. DARVOCET [Suspect]
     Indication: NECK PAIN
     Dosage: 100/650 1 OR 2 TABLES WHEN NEEDED FOR PAIN BY MOUTH
     Route: 048
     Dates: start: 20000105
  12. DARVOCET [Suspect]
     Indication: PAIN IN EXTREMITY
     Dosage: 100/650 1 OR 2 TABLES WHEN NEEDED FOR PAIN BY MOUTH
     Route: 048
     Dates: start: 20000105
  13. DARVOCET [Suspect]
     Indication: BACK PAIN
     Dosage: 100/650 1 OR 2 TABLES WHEN NEEDED FOR PAIN BY MOUTH
     Route: 048
     Dates: start: 20000105
  14. DARVOCET [Suspect]
     Indication: FIBROMYALGIA
     Dosage: 100/650 1 OR 2 TABLES WHEN NEEDED FOR PAIN BY MOUTH
     Route: 048
     Dates: start: 20000105
  15. DARVOCET [Suspect]
     Indication: ARTHRALGIA
     Dosage: 100/650 1 OR 2 TABLES WHEN NEEDED FOR PAIN BY MOUTH
     Route: 048
     Dates: start: 20000105
  16. DARVOCET [Suspect]
     Indication: NECK PAIN
     Dosage: 100/650 1 OR 2 TABLES WHEN NEEDED FOR PAIN BY MOUTH
     Route: 048
     Dates: start: 20101102
  17. DARVOCET [Suspect]
     Indication: PAIN IN EXTREMITY
     Dosage: 100/650 1 OR 2 TABLES WHEN NEEDED FOR PAIN BY MOUTH
     Route: 048
     Dates: start: 20101102
  18. DARVOCET [Suspect]
     Indication: BACK PAIN
     Dosage: 100/650 1 OR 2 TABLES WHEN NEEDED FOR PAIN BY MOUTH
     Route: 048
     Dates: start: 20101102
  19. DARVOCET [Suspect]
     Indication: FIBROMYALGIA
     Dosage: 100/650 1 OR 2 TABLES WHEN NEEDED FOR PAIN BY MOUTH
     Route: 048
     Dates: start: 20101102
  20. DARVOCET [Suspect]
     Indication: ARTHRALGIA
     Dosage: 100/650 1 OR 2 TABLES WHEN NEEDED FOR PAIN BY MOUTH
     Route: 048
     Dates: start: 20101102
  21. DARVOCET [Suspect]
     Indication: NECK PAIN
     Dosage: 100/650 1 OR 2 TABLES WHEN NEEDED FOR PAIN BY MOUTH
     Route: 048
     Dates: start: 20090518
  22. DARVOCET [Suspect]
     Indication: PAIN IN EXTREMITY
     Dosage: 100/650 1 OR 2 TABLES WHEN NEEDED FOR PAIN BY MOUTH
     Route: 048
     Dates: start: 20090518
  23. DARVOCET [Suspect]
     Indication: BACK PAIN
     Dosage: 100/650 1 OR 2 TABLES WHEN NEEDED FOR PAIN BY MOUTH
     Route: 048
     Dates: start: 20090518
  24. DARVOCET [Suspect]
     Indication: FIBROMYALGIA
     Dosage: 100/650 1 OR 2 TABLES WHEN NEEDED FOR PAIN BY MOUTH
     Route: 048
     Dates: start: 20090518
  25. DARVOCET [Suspect]
     Indication: ARTHRALGIA
     Dosage: 100/650 1 OR 2 TABLES WHEN NEEDED FOR PAIN BY MOUTH
     Route: 048
     Dates: start: 20090518
  26. FLEXERIL [Concomitant]

REACTIONS (12)
  - DIZZINESS [None]
  - HEART RATE INCREASED [None]
  - CONFUSIONAL STATE [None]
  - FEELING ABNORMAL [None]
  - CHEST PAIN [None]
  - PALPITATIONS [None]
  - DEPRESSION [None]
  - RESTLESSNESS [None]
  - ARRHYTHMIA [None]
  - ANXIETY [None]
  - MOOD SWINGS [None]
  - DYSPNOEA [None]
